FAERS Safety Report 19938774 (Version 1)
Quarter: 2021Q4

REPORT INFORMATION
  Report Type: Spontaneous
  Country: US (occurrence: US)
  Receive Date: 20211011
  Receipt Date: 20211011
  Transmission Date: 20220303
  Serious: No
  Sender: FDA-Public Use
  Company Number: US-BAYER-2021A224772

PATIENT
  Age: 51 Year
  Sex: Female

DRUGS (1)
  1. MIRENA [Suspect]
     Active Substance: LEVONORGESTREL
     Indication: Menometrorrhagia
     Dosage: 20 ?G, CONT
     Route: 015
     Dates: start: 201606

REACTIONS (2)
  - Amenorrhoea [None]
  - Vaginal discharge [None]
